FAERS Safety Report 8471887-0 (Version None)
Quarter: 2012Q2

REPORT INFORMATION
  Report Type: 
  Country: None (occurrence: None)
  Receive Date: 20120627
  Receipt Date: 20120615
  Transmission Date: 20120825
  Serious: Yes (Hospitalization)
  Sender: FDA-Public Use
  Company Number: AU-JNJFOC-20120509110

PATIENT
  Sex: Male
  Weight: 75 kg

DRUGS (49)
  1. ABIRATERONE ACETATE [Suspect]
     Route: 048
  2. MAXOLON [Concomitant]
     Route: 065
     Dates: start: 20120528, end: 20120528
  3. MAXOLON [Concomitant]
     Route: 065
     Dates: start: 20120530, end: 20120530
  4. ELIGARD [Concomitant]
     Indication: HORMONE THERAPY
     Route: 065
     Dates: start: 20100101
  5. SODIUM CHLORIDE [Concomitant]
     Indication: VOMITING
     Route: 065
     Dates: start: 20120531
  6. MAXOLON [Concomitant]
     Indication: VOMITING
     Route: 065
     Dates: start: 20120505, end: 20120506
  7. MAXOLON [Concomitant]
     Route: 065
     Dates: start: 20120523, end: 20120524
  8. MAXOLON [Concomitant]
     Route: 065
     Dates: start: 20120526, end: 20120526
  9. MAXOLON [Concomitant]
     Route: 065
     Dates: start: 20120528, end: 20120528
  10. PREDNISOLONE [Suspect]
     Indication: PROSTATE CANCER METASTATIC
     Route: 048
     Dates: start: 20120403
  11. FENTANYL [Suspect]
     Indication: BACK PAIN
     Route: 062
     Dates: start: 20120505, end: 20120505
  12. MAXOLON [Concomitant]
     Route: 065
     Dates: start: 20120528, end: 20120528
  13. MORPHINE [Concomitant]
     Indication: BACK PAIN
     Route: 058
     Dates: start: 20120505, end: 20120505
  14. ENOXAPARIN SODIUM [Concomitant]
     Indication: BACK PAIN
     Route: 065
     Dates: start: 20120513, end: 20120514
  15. SODIUM CHLORIDE [Concomitant]
     Route: 065
     Dates: start: 20120528, end: 20120528
  16. SODIUM CHLORIDE [Concomitant]
     Route: 065
     Dates: start: 20120528, end: 20120528
  17. NORFLOXACIN [Concomitant]
     Indication: VOMITING
     Route: 065
     Dates: start: 20120513, end: 20120514
  18. MAXOLON [Concomitant]
     Route: 065
     Dates: start: 20120513, end: 20120514
  19. MAXOLON [Concomitant]
     Route: 065
     Dates: start: 20120530, end: 20120530
  20. MAXOLON [Concomitant]
     Indication: NAUSEA
     Route: 065
     Dates: start: 20120531, end: 20120531
  21. MAXOLON [Concomitant]
     Route: 065
     Dates: start: 20120513, end: 20120514
  22. SODIUM CHLORIDE [Concomitant]
     Route: 065
     Dates: start: 20120523, end: 20120524
  23. ONDANSETRON (ZOFRAN) [Concomitant]
     Indication: NAUSEA
     Route: 065
     Dates: start: 20120528, end: 20120528
  24. MAXOLON [Concomitant]
     Route: 065
     Dates: start: 20120523, end: 20120524
  25. MAXOLON [Concomitant]
     Indication: BACK PAIN
     Route: 065
     Dates: start: 20120531, end: 20120531
  26. SODIUM CHLORIDE [Concomitant]
     Route: 065
     Dates: start: 20120523, end: 20120524
  27. SODIUM CHLORIDE [Concomitant]
     Route: 065
     Dates: start: 20120513, end: 20120513
  28. ONDANSETRON (ZOFRAN) [Concomitant]
     Indication: VOMITING
     Route: 065
     Dates: start: 20120528, end: 20120528
  29. ONDANSETRON (ZOFRAN) [Concomitant]
     Route: 065
     Dates: start: 20120531
  30. MAXOLON [Concomitant]
     Route: 065
     Dates: start: 20120531, end: 20120531
  31. MAXOLON [Concomitant]
     Route: 065
     Dates: start: 20120526, end: 20120526
  32. MAXOLON [Concomitant]
     Route: 065
     Dates: start: 20120523, end: 20120524
  33. MAXOLON [Concomitant]
     Route: 065
     Dates: start: 20120530, end: 20120530
  34. MAXOLON [Concomitant]
     Route: 065
     Dates: start: 20120526, end: 20120526
  35. SODIUM CHLORIDE [Concomitant]
     Route: 065
     Dates: start: 20120513, end: 20120513
  36. ABIRATERONE ACETATE [Suspect]
     Indication: PROSTATE CANCER METASTATIC
     Route: 048
     Dates: start: 20120403, end: 20120610
  37. MAXOLON [Concomitant]
     Route: 065
     Dates: start: 20120505, end: 20120506
  38. VALIUM [Concomitant]
     Indication: BACK PAIN
     Route: 065
     Dates: start: 20120505, end: 20120505
  39. SODIUM CHLORIDE [Concomitant]
     Indication: NAUSEA
     Route: 065
     Dates: start: 20120531
  40. HARTMANNS [Concomitant]
     Indication: VOMITING
     Route: 065
     Dates: start: 20120515, end: 20120515
  41. OXYCODONE HCL [Concomitant]
     Indication: BACK PAIN
     Route: 065
     Dates: start: 20120505, end: 20120505
  42. ONDANSETRON (ZOFRAN) [Concomitant]
     Route: 065
     Dates: start: 20120531
  43. MAXOLON [Concomitant]
     Route: 065
     Dates: start: 20120505, end: 20120506
  44. MAXOLON [Concomitant]
     Route: 065
     Dates: start: 20120513, end: 20120514
  45. DEXAMETHASONE [Concomitant]
     Indication: BACK PAIN
     Route: 065
     Dates: start: 20120507, end: 20120507
  46. ENOXAPARIN SODIUM [Concomitant]
     Route: 065
     Dates: start: 20120506, end: 20120506
  47. SODIUM CHLORIDE [Concomitant]
     Route: 065
     Dates: start: 20120514, end: 20120514
  48. SODIUM CHLORIDE [Concomitant]
     Route: 065
     Dates: start: 20120514, end: 20120514
  49. ASPIRIN [Concomitant]
     Indication: VOMITING
     Route: 065
     Dates: start: 20120513, end: 20120515

REACTIONS (3)
  - BACK PAIN [None]
  - VOMITING [None]
  - NAUSEA [None]
